FAERS Safety Report 8438956-2 (Version None)
Quarter: 2012Q2

REPORT INFORMATION
  Report Type: 
  Country: None (occurrence: None)
  Receive Date: 20120615
  Receipt Date: 20120611
  Transmission Date: 20120825
  Serious: No
  Sender: FDA-Public Use
  Company Number: US-PFIZER INC-2012139921

PATIENT
  Sex: Male

DRUGS (1)
  1. VORICONAZOLE [Suspect]

REACTIONS (2)
  - DYSPHAGIA [None]
  - MUSCLE ATROPHY [None]
